FAERS Safety Report 11814854 (Version 1)
Quarter: 2015Q4

REPORT INFORMATION
  Report Type: Spontaneous
  Country: US (occurrence: US)
  Receive Date: 20151209
  Receipt Date: 20151209
  Transmission Date: 20160305
  Serious: No
  Sender: FDA-Public Use
  Company Number: US-SA-2015SA132198

PATIENT
  Age: 75 Year
  Sex: Male

DRUGS (5)
  1. APIDRA SOLOSTAR [Concomitant]
     Active Substance: INSULIN GLULISINE
  2. SOLOSTAR [Concomitant]
     Active Substance: DEVICE
  3. TOUJEO [Suspect]
     Active Substance: INSULIN GLARGINE
     Dosage: DOSE: 8-10U DOSE:10 UNIT(S)
     Route: 065
  4. LANTUS SOLOSTAR [Concomitant]
     Active Substance: INSULIN GLARGINE
  5. SOLOSTAR [Concomitant]
     Active Substance: DEVICE

REACTIONS (2)
  - Blood glucose decreased [Unknown]
  - Blood glucose increased [Unknown]

NARRATIVE: CASE EVENT DATE: 2015
